FAERS Safety Report 17165541 (Version 2)
Quarter: 2019Q4

REPORT INFORMATION
  Report Type: Spontaneous
  Country: JP (occurrence: JP)
  Receive Date: 20191217
  Receipt Date: 20191223
  Transmission Date: 20200122
  Serious: Yes (Hospitalization)
  Sender: FDA-Public Use
  Company Number: JP-JNJFOC-20190733119

PATIENT
  Age: 84 Year
  Sex: Male
  Weight: 43 kg

DRUGS (7)
  1. FEBURIC [Concomitant]
     Active Substance: FEBUXOSTAT
     Route: 048
  2. PREDNISOLONE. [Concomitant]
     Active Substance: PREDNISOLONE
     Route: 048
  3. OMEPRAZOLE. [Concomitant]
     Active Substance: OMEPRAZOLE
     Route: 048
  4. GONAX [Concomitant]
     Active Substance: DEGARELIX
     Route: 058
  5. ERLEADA [Suspect]
     Active Substance: APALUTAMIDE
     Route: 048
     Dates: start: 20190730, end: 201907
  6. ERLEADA [Suspect]
     Active Substance: APALUTAMIDE
     Route: 048
     Dates: start: 2019, end: 20190928
  7. ERLEADA [Suspect]
     Active Substance: APALUTAMIDE
     Indication: PRODUCT USED FOR UNKNOWN INDICATION
     Route: 048
     Dates: start: 20190702, end: 201907

REACTIONS (4)
  - Nausea [Recovering/Resolving]
  - Herpes zoster [Recovered/Resolved]
  - Spinal compression fracture [Recovering/Resolving]
  - Decreased appetite [Recovering/Resolving]

NARRATIVE: CASE EVENT DATE: 20190716
